FAERS Safety Report 5930689-7 (Version None)
Quarter: 2008Q4

REPORT INFORMATION
  Report Type: 
  Country: None (occurrence: None)
  Receive Date: 20081024
  Receipt Date: 20081024
  Transmission Date: 20090506
  Serious: Yes (Life-Threatening)
  Sender: FDA-Public Use
  Company Number: None

PATIENT
  Age: 6 Year
  Sex: Male
  Weight: 24.4942 kg

DRUGS (1)
  1. VYVANSE [Suspect]
     Indication: ATTENTION DEFICIT/HYPERACTIVITY DISORDER
     Dosage: 30MG DAILY X3 P.O.
     Route: 048
     Dates: start: 20080902

REACTIONS (15)
  - AGGRESSION [None]
  - AGITATION [None]
  - CRYING [None]
  - DYSPNOEA [None]
  - FATIGUE [None]
  - FLUID INTAKE REDUCED [None]
  - HEADACHE [None]
  - HEART RATE INCREASED [None]
  - HYPOPHAGIA [None]
  - INSOMNIA [None]
  - OPISTHOTONUS [None]
  - PALPITATIONS [None]
  - SKIN DISCOLOURATION [None]
  - SPEECH DISORDER [None]
  - VISION BLURRED [None]
